FAERS Safety Report 7361104-7 (Version None)
Quarter: 2011Q1

REPORT INFORMATION
  Report Type: 
  Country: None (occurrence: None)
  Receive Date: 20110318
  Receipt Date: 20110315
  Transmission Date: 20110831
  Serious: Yes (Other)
  Sender: FDA-Public Use
  Company Number: CHPA2011US04045

PATIENT
  Age: 5 Year
  Sex: Male
  Weight: 16.327 kg

DRUGS (1)
  1. TRIAMINIC FEVER REDUCER PAIN RELIEVER [Suspect]
     Indication: PYREXIA
     Dosage: 1.5 TSP, ONCE/SINGLE
     Route: 048
     Dates: start: 20110314, end: 20110314

REACTIONS (2)
  - HEART RATE INCREASED [None]
  - DRUG INEFFECTIVE [None]
